FAERS Safety Report 7985989 (Version 3)
Quarter: 2013Q1

REPORT INFORMATION
  Report Type: Report from Study
  Country: FR (occurrence: FR)
  Receive Date: 20110610
  Receipt Date: 20130228
  Transmission Date: 20140127
  Serious: Yes (Death, Other)
  Sender: FDA-Public Use
  Company Number: FR-JNJFOC-20110602381

PATIENT
  Age: 53 Year
  Sex: Male
  Weight: 68 kg

DRUGS (6)
  1. ABIRATERONE ACETATE [Suspect]
     Route: 048
  2. ABIRATERONE ACETATE [Suspect]
     Indication: PROSTATE CANCER
     Route: 048
     Dates: start: 20110419, end: 20110509
  3. PREDNISOLONE [Suspect]
     Indication: PROSTATE CANCER
     Route: 048
     Dates: start: 201104
  4. LYRICA [Concomitant]
     Indication: NEUROPATHY PERIPHERAL
     Route: 048
     Dates: start: 201103
  5. SEROPLEX [Concomitant]
     Indication: DEPRESSION
     Route: 048
     Dates: start: 201104
  6. MORPHINE [Concomitant]
     Indication: PAIN
     Route: 042
     Dates: start: 201103

REACTIONS (6)
  - Pulmonary arterial hypertension [Fatal]
  - Respiratory distress [Fatal]
  - Hypoxia [Fatal]
  - Thrombocytopenia [Fatal]
  - Blood alkaline phosphatase increased [Unknown]
  - Oxygen saturation decreased [Not Recovered/Not Resolved]
